FAERS Safety Report 15644412 (Version 2)
Quarter: 2018Q4

REPORT INFORMATION
  Report Type: Spontaneous
  Country: CN (occurrence: CN)
  Receive Date: 20181121
  Receipt Date: 20181227
  Transmission Date: 20190205
  Serious: Yes (Hospitalization)
  Sender: FDA-Public Use
  Company Number: CN-NOVOPROD-631807

PATIENT
  Age: 87 Year
  Sex: Female
  Weight: 50 kg

DRUGS (3)
  1. NOVOLIN [Suspect]
     Active Substance: INSULIN HUMAN
     Dosage: UNK (IMPORTED NOVOLIN 30R)
     Route: 065
  2. NOVOLIN [Suspect]
     Active Substance: INSULIN HUMAN
     Indication: PRODUCT USED FOR UNKNOWN INDICATION
     Dosage: 40 U, QD (25U IN THE MORNING, 15U IN THE EVENING)
     Route: 058
  3. NOVOLIN [Suspect]
     Active Substance: INSULIN HUMAN
     Dosage: 40 U, QD (25U IN THE MORNING, 15U IN THE EVENING)
     Route: 058

REACTIONS (3)
  - Cerebrovascular accident [Recovered/Resolved]
  - Blood glucose increased [Not Recovered/Not Resolved]
  - Drug effect incomplete [Unknown]

NARRATIVE: CASE EVENT DATE: 20180802
